FAERS Safety Report 6575303-5 (Version None)
Quarter: 2010Q1

REPORT INFORMATION
  Report Type: 
  Country: None (occurrence: None)
  Receive Date: 20100209
  Receipt Date: 20100126
  Transmission Date: 20100710
  Serious: Yes (Hospitalization)
  Sender: FDA-Public Use
  Company Number: BR-ROCHE-681832

PATIENT
  Sex: Female
  Weight: 52 kg

DRUGS (3)
  1. TOCILIZUMAB [Suspect]
     Indication: RHEUMATOID ARTHRITIS
     Dosage: LAST DOSE PRIOR TO SAE: 28 DEC 2009
     Route: 042
     Dates: start: 20091130, end: 20100125
  2. BLINDED METHOTREXATE [Suspect]
     Indication: RHEUMATOID ARTHRITIS
     Dosage: LAST DOSE PRIOR TO SAE: 28 DEC 2009, DOSE BLINDED
     Route: 048
     Dates: start: 20091130, end: 20100125
  3. METFORMIN HCL [Concomitant]
     Dates: start: 20050901

REACTIONS (1)
  - STRESS CARDIOMYOPATHY [None]
